FAERS Safety Report 9846563 (Version 1)
Quarter: 2014Q1

REPORT INFORMATION
  Report Type: Spontaneous
  Country: BR (occurrence: BR)
  Receive Date: 20140127
  Receipt Date: 20140127
  Transmission Date: 20141002
  Serious: Yes (Other)
  Sender: FDA-Public Use
  Company Number: PHHY2014BR008685

PATIENT
  Sex: Male

DRUGS (1)
  1. LEPONEX [Suspect]
     Dosage: 25 MG, UNK

REACTIONS (1)
  - Dementia [Unknown]
